FAERS Safety Report 4528849-5 (Version None)
Quarter: 2004Q4

REPORT INFORMATION
  Report Type: 
  Country: None (occurrence: None)
  Receive Date: 20041215
  Receipt Date: 20041215
  Transmission Date: 20050328
  Serious: Yes (Hospitalization)
  Sender: FDA-Public Use
  Company Number: None

PATIENT
  Age: 84 Year
  Sex: Male
  Weight: 87.1 kg

DRUGS (8)
  1. HALDOL [Suspect]
     Indication: ABNORMAL BEHAVIOUR
     Dosage: 0.5 MG Q4 H PRN X2 DOSES
     Dates: start: 20041009
  2. VICODIN [Concomitant]
  3. DEPAKOTE [Concomitant]
  4. IRON [Concomitant]
  5. BEXTRA [Concomitant]
  6. PRILOSEC [Concomitant]
  7. LIDODERM [Concomitant]
  8. SEROQUEL [Concomitant]

REACTIONS (3)
  - ABASIA [None]
  - COMA [None]
  - LETHARGY [None]
